FAERS Safety Report 24543089 (Version 2)
Quarter: 2024Q4

REPORT INFORMATION
  Report Type: Report from Study
  Country: TW (occurrence: TW)
  Receive Date: 20241024
  Receipt Date: 20241107
  Transmission Date: 20250115
  Serious: Yes (Hospitalization, Other)
  Sender: CELLTRION
  Company Number: TW-CELLTRION INC.-2024TW026193

PATIENT

DRUGS (6)
  1. TRUXIMA [Suspect]
     Active Substance: RITUXIMAB-ABBS
     Indication: Rheumatoid arthritis
     Dosage: 500 MG
     Route: 042
     Dates: start: 20240809, end: 20240830
  2. TRUXIMA [Suspect]
     Active Substance: RITUXIMAB-ABBS
     Dosage: 1000 MG ONCE
     Route: 042
     Dates: start: 20240809, end: 20240809
  3. TRUXIMA [Suspect]
     Active Substance: RITUXIMAB-ABBS
     Dosage: 1000 MG ONCE
     Route: 042
     Dates: start: 20240830, end: 20240830
  4. DOXYMYCIN [DOXYCYCLINE HYDROCHLORIDE] [Concomitant]
     Indication: Atypical mycobacterial infection
     Dosage: 100 MG, BID
     Route: 048
     Dates: start: 20240628, end: 20241004
  5. MOXETERO [Concomitant]
     Indication: Atypical mycobacterial infection
     Dosage: 400 MG, QD
     Route: 048
     Dates: start: 20240802, end: 20241004
  6. METHOTREXATE [Concomitant]
     Active Substance: METHOTREXATE
     Indication: Rheumatoid arthritis
     Dosage: 0.5 MG, QN
     Route: 048
     Dates: start: 20240807, end: 20241004

REACTIONS (3)
  - Hepatitis acute [Not Recovered/Not Resolved]
  - Pyrexia [Not Recovered/Not Resolved]
  - Underdose [Unknown]

NARRATIVE: CASE EVENT DATE: 20241004
